FAERS Safety Report 9370967 (Version 1)
Quarter: 2013Q2

REPORT INFORMATION
  Report Type: Report from Study
  Country: KP (occurrence: KP)
  Receive Date: 20130627
  Receipt Date: 20130627
  Transmission Date: 20140414
  Serious: Yes (Hospitalization, Other)
  Sender: FDA-Public Use
  Company Number: KP-ROCHE-1162440

PATIENT
  Age: 65 Year
  Sex: Male
  Weight: 78 kg

DRUGS (10)
  1. BEVACIZUMAB [Suspect]
     Indication: GASTRIC CANCER
     Dosage: DATE OF LAST DOSE PRIOR TO SAE: 21/NOV/2012
     Route: 042
     Dates: start: 20121121
  2. CAPECITABINE [Suspect]
     Indication: GASTRIC CANCER
     Dosage: DATE OF LAST DOSE PRIOR TO SAE: 21/NOV/2012
     Route: 048
     Dates: start: 20121121, end: 20121128
  3. DOCETAXEL [Suspect]
     Indication: GASTRIC CANCER
     Dosage: DATE OF LAST DOSE PRIOR TO SAE: 21/NOV/2012
     Route: 042
     Dates: start: 20121121
  4. CISPLATIN [Suspect]
     Indication: GASTRIC CANCER
     Dosage: DATE OF LAST DOSE PRIOR TO SAE: 21/NOV/2012
     Route: 042
     Dates: start: 20121121
  5. SUCRALFATE [Concomitant]
     Dosage: DRUG REPORTED AS BASIC ALUMINIUM SUCRALFATE
     Route: 065
     Dates: start: 20121112
  6. METOCLOPRAMIDE/PANCREATIN [Concomitant]
     Route: 065
     Dates: start: 20121121
  7. FEROBA-YOU [Concomitant]
     Dosage: DRUG REPORTED AS FEROBA
     Route: 065
     Dates: start: 20121113
  8. MEGESTROL ACETATE [Concomitant]
     Route: 065
     Dates: start: 20121121
  9. MAGNESIUM OXIDE [Concomitant]
     Route: 065
     Dates: start: 20121121
  10. LOPERAMIDE OXIDE [Concomitant]
     Route: 065
     Dates: start: 20121121

REACTIONS (2)
  - Enteritis [Recovered/Resolved]
  - Gastric perforation [Recovered/Resolved]
